FAERS Safety Report 4429159-7 (Version None)
Quarter: 2004Q3

REPORT INFORMATION
  Report Type: 
  Country: None (occurrence: None)
  Receive Date: 20040726
  Receipt Date: 20040407
  Transmission Date: 20050211
  Serious: No
  Sender: FDA-Public Use
  Company Number: USA040464339

PATIENT
  Age: 76 Year
  Sex: Female

DRUGS (12)
  1. FORTEO [Suspect]
     Dates: start: 20040301
  2. PREDNISONE [Concomitant]
  3. PROTONIX [Concomitant]
  4. POTASSIUM [Concomitant]
  5. METFORMIN HCL [Concomitant]
  6. THEOPHYLLINE [Concomitant]
  7. METOCLOPRAMIDE [Concomitant]
  8. MAGNESIUM [Concomitant]
  9. CELEXA [Concomitant]
  10. SINGULAIR [Concomitant]
  11. TRAZADONE (TRAZODONE [Concomitant]
  12. INSULIN [Concomitant]

REACTIONS (4)
  - BLOOD SODIUM DECREASED [None]
  - DEHYDRATION [None]
  - DIZZINESS [None]
  - OVERDOSE [None]
